FAERS Safety Report 8618455-5 (Version None)
Quarter: 2012Q3

REPORT INFORMATION
  Report Type: 
  Country: None (occurrence: None)
  Receive Date: 20120824
  Receipt Date: 20120821
  Transmission Date: 20120928
  Serious: Yes (Death)
  Sender: FDA-Public Use
  Company Number: AU-009507513-1208AUS009151

PATIENT

DRUGS (14)
  1. ZOCOR [Suspect]
     Dosage: 80 MG, QD
     Route: 048
  2. LANTUS [Concomitant]
  3. PRISTIQ [Suspect]
     Indication: DEPRESSION
     Dosage: 50 MG, QD
  4. ALDOMET [Concomitant]
     Dosage: 250 MG THREE TWICE A DAY
  5. ASPIRIN [Concomitant]
     Dosage: 100 MG, QAM
  6. IRBESARTAN AND HYDROCHLOROTHIAZIDE [Concomitant]
     Dosage: UNK, QD
  7. LERCANIDIPINE [Concomitant]
     Dosage: 20 MG, QPM
  8. METOPROLOL TARTRATE [Concomitant]
     Dosage: UNK, BID
  9. ACTOS [Concomitant]
     Dosage: 15 MG, QD
  10. METFORMIN HCL [Concomitant]
     Dosage: 1000 MG, BID
  11. RAMIPRIL [Concomitant]
     Dosage: 100 MG, QPM
  12. NEXIUM [Concomitant]
     Dosage: 20 MG, QD
  13. DUATROL SR [Concomitant]
     Dosage: TWO 6 HOURLY, PRN
  14. NOVORAPID [Concomitant]

REACTIONS (2)
  - HYPONATRAEMIA [None]
  - DEATH [None]
